FAERS Safety Report 8772783 (Version 2)
Quarter: 2012Q4

REPORT INFORMATION
  Report Type: 
  Country: DE (occurrence: DE)
  Receive Date: 20120907
  Receipt Date: 20121008
  Transmission Date: 20130627
  Serious: Yes (Life-Threatening, Other)
  Sender: FDA-Public Use
  Company Number: DE-PFIZER INC-2012218266

PATIENT
  Age: 70 Year
  Sex: Male

DRUGS (7)
  1. SUNITINIB MALATE [Suspect]
     Dosage: according to protocol
     Dates: start: 20110715, end: 20120903
  2. SPIRONOLACTONE [Concomitant]
     Dosage: 50 mg, 1x/day
     Dates: start: 20120903
  3. LEVOSIMENDAN [Concomitant]
     Dosage: UNK
     Dates: start: 20120903, end: 20120925
  4. NITROPRUSSIDE SODIUM [Concomitant]
     Dosage: UNK
     Dates: start: 20120903, end: 20120925
  5. METAMIZOLE [Concomitant]
     Dosage: 160 mg/l, 1x/day
     Dates: start: 20110920
  6. FENTANYL [Concomitant]
     Dosage: 50 ug/h daily
     Dates: start: 20120903, end: 20120925
  7. AMITRIPTYLINE [Concomitant]
     Dosage: 75 mg, 1x/day
     Dates: start: 20120903

REACTIONS (1)
  - Cardiac failure [Recovered/Resolved with Sequelae]
